FAERS Safety Report 24625680 (Version 1)
Quarter: 2024Q4

REPORT INFORMATION
  Report Type: Spontaneous
  Country: US (occurrence: None)
  Receive Date: 20241115
  Receipt Date: 20241115
  Transmission Date: 20250115
  Serious: Yes (Hospitalization)
  Sender: Public
  Company Number: None

PATIENT
  Age: 79 Year
  Sex: Female
  Weight: 90.72 kg

DRUGS (20)
  1. JARDIANCE [Suspect]
     Active Substance: EMPAGLIFLOZIN
     Indication: Diabetic cardiomyopathy
     Dosage: 1 TBLET DILY  1 MORNING MOUTH
     Route: 048
     Dates: start: 20240824, end: 20240903
  2. ALBUTEROL SULFATE [Concomitant]
     Active Substance: ALBUTEROL SULFATE
  3. CARVEDILOL [Concomitant]
     Active Substance: CARVEDILOL
  4. TRIMETHOPRIM [Concomitant]
     Active Substance: TRIMETHOPRIM
  5. FUROSEMIDE [Concomitant]
     Active Substance: FUROSEMIDE
  6. ESTRADIOL [Concomitant]
     Active Substance: ESTRADIOL
  7. CLOPIDOGREL [Concomitant]
     Active Substance: CLOPIDOGREL BISULFATE
  8. COLCHICINE [Concomitant]
     Active Substance: COLCHICINE
  9. ENTRESTO [Concomitant]
     Active Substance: SACUBITRIL\VALSARTAN
  10. ADVAIR HFA [Concomitant]
     Active Substance: FLUTICASONE PROPIONATE\SALMETEROL XINAFOATE
  11. MECLIZINE [Concomitant]
     Active Substance: MECLIZINE HYDROCHLORIDE
  12. ALPHA LIPOIC ACID [Concomitant]
     Active Substance: .ALPHA.-LIPOIC ACID
  13. ASPIRIN [Concomitant]
     Active Substance: ASPIRIN
  14. acelastine [Concomitant]
  15. VITAMIN D3 [Concomitant]
     Active Substance: CHOLECALCIFEROL
  16. VITAMINS [Concomitant]
     Active Substance: VITAMINS
  17. eye drops-glycerin [Concomitant]
  18. VITAMIN B12 [Concomitant]
     Active Substance: CYANOCOBALAMIN
  19. ALLEGRA [Concomitant]
     Active Substance: FEXOFENADINE HYDROCHLORIDE
  20. vitimin b-6 [Concomitant]

REACTIONS (8)
  - Faecaloma [None]
  - Rectal haemorrhage [None]
  - Urinary retention [None]
  - Urinary tract infection [None]
  - Urinary tract candidiasis [None]
  - Peripheral swelling [None]
  - Gait disturbance [None]
  - Colitis ischaemic [None]

NARRATIVE: CASE EVENT DATE: 20240831
